FAERS Safety Report 13634992 (Version 1)
Quarter: 2017Q2

REPORT INFORMATION
  Report Type: Spontaneous
  Country: US (occurrence: US)
  Receive Date: 20170531
  Receipt Date: 20170531
  Transmission Date: 20170830
  Serious: No
  Sender: FDA-Public Use
  Company Number: US-ASTELLAS-1675864

PATIENT
  Sex: Female

DRUGS (6)
  1. FISH OIL [Concomitant]
     Active Substance: FISH OIL
  2. TARCEVA [Suspect]
     Active Substance: ERLOTINIB HYDROCHLORIDE
     Route: 048
     Dates: start: 20151117
  3. OTEZLA [Suspect]
     Active Substance: APREMILAST
     Indication: PSORIASIS
     Route: 065
     Dates: start: 20150325
  4. CLARITIN [Concomitant]
     Active Substance: LORATADINE
  5. TARCEVA [Suspect]
     Active Substance: ERLOTINIB HYDROCHLORIDE
     Indication: PSORIASIS
     Route: 048
     Dates: start: 20150325
  6. OTEZLA [Suspect]
     Active Substance: APREMILAST
     Indication: PSORIASIS

REACTIONS (5)
  - Pruritus [Unknown]
  - Oropharyngeal pain [Unknown]
  - Rash [Unknown]
  - Cough [Unknown]
  - Gastrooesophageal reflux disease [Unknown]
